FAERS Safety Report 8393099-1 (Version None)
Quarter: 2012Q2

REPORT INFORMATION
  Report Type: 
  Country: None (occurrence: None)
  Receive Date: 20120529
  Receipt Date: 20120425
  Transmission Date: 20120825
  Serious: No
  Sender: FDA-Public Use
  Company Number: US-ABBOTT-12P-163-0930152-00

PATIENT
  Sex: Male
  Weight: 88.53 kg

DRUGS (1)
  1. ANDROGEL [Suspect]
     Indication: BLOOD TESTOSTERONE DECREASED
     Dosage: 2 PUMPS IN THE MORNING
     Route: 061
     Dates: start: 20120201, end: 20120301

REACTIONS (2)
  - PAINFUL DEFAECATION [None]
  - GYNAECOMASTIA [None]
